FAERS Safety Report 19860159 (Version 1)
Quarter: 2021Q3

REPORT INFORMATION
  Report Type: Spontaneous
  Country: GB (occurrence: GB)
  Receive Date: 20210920
  Receipt Date: 20210920
  Transmission Date: 20211014
  Serious: Yes (Life-Threatening, Disabling, Other)
  Sender: FDA-Public Use
  Company Number: GB-009507513-2109GBR002896

PATIENT
  Age: 74 Year
  Sex: Female
  Weight: 65 kg

DRUGS (6)
  1. AMPHOTERICIN B. [Concomitant]
     Active Substance: AMPHOTERICIN B
     Indication: ILL-DEFINED DISORDER
  2. ATORVASTATIN CALCIUM. [Concomitant]
     Active Substance: ATORVASTATIN CALCIUM
     Indication: ILL-DEFINED DISORDER
  3. REMDESIVIR. [Concomitant]
     Active Substance: REMDESIVIR
     Indication: ILL-DEFINED DISORDER
  4. ASPIRINE [Concomitant]
     Active Substance: ASPIRIN
     Indication: ILL-DEFINED DISORDER
  5. POSACONAZOLE [Suspect]
     Active Substance: POSACONAZOLE
     Indication: MUCORMYCOSIS
     Dosage: 300 MILLIGRAM, QD
     Route: 051
     Dates: start: 20210610, end: 20210614
  6. RAMIPRIL. [Concomitant]
     Active Substance: RAMIPRIL
     Indication: ILL-DEFINED DISORDER

REACTIONS (1)
  - Adverse drug reaction [Unknown]

NARRATIVE: CASE EVENT DATE: 20210612
